FAERS Safety Report 15917298 (Version 2)
Quarter: 2019Q1

REPORT INFORMATION
  Report Type: Spontaneous
  Country: US (occurrence: US)
  Receive Date: 20190205
  Receipt Date: 20190326
  Transmission Date: 20190417
  Serious: Yes (Hospitalization, Other)
  Sender: FDA-Public Use
  Company Number: US-ASTRAZENECA-2019SE18841

PATIENT
  Age: 877 Month
  Sex: Female
  Weight: 76.7 kg

DRUGS (1)
  1. BYDUREON BCISE [Suspect]
     Active Substance: EXENATIDE
     Indication: TYPE 2 DIABETES MELLITUS
     Route: 058
     Dates: start: 2018

REACTIONS (12)
  - Malaise [Unknown]
  - Ear disorder [Unknown]
  - Arthritis [Not Recovered/Not Resolved]
  - Gastrooesophageal reflux disease [Unknown]
  - Hip fracture [Recovering/Resolving]
  - Retinal tear [Recovering/Resolving]
  - Fall [Not Recovered/Not Resolved]
  - Hypoacusis [Unknown]
  - Glycosylated haemoglobin increased [Unknown]
  - Neuropathy peripheral [Not Recovered/Not Resolved]
  - Nasopharyngitis [Not Recovered/Not Resolved]
  - Device malfunction [Unknown]

NARRATIVE: CASE EVENT DATE: 201811
